FAERS Safety Report 4367482-5 (Version None)
Quarter: 2004Q2

REPORT INFORMATION
  Report Type: 
  Country: None (occurrence: None)
  Receive Date: 20040601
  Receipt Date: 20040309
  Transmission Date: 20050107
  Serious: Yes (Other)
  Sender: FDA-Public Use
  Company Number: 200410935FR

PATIENT
  Age: 69 Year
  Sex: Male
  Weight: 75 kg

DRUGS (7)
  1. KETEK [Suspect]
     Indication: BRONCHITIS
     Route: 048
     Dates: start: 20030725, end: 20030729
  2. DIPRIVAN [Concomitant]
     Indication: COLONOSCOPY
     Dates: start: 20030729, end: 20030729
  3. ALFENTANIL [Concomitant]
     Indication: COLONOSCOPY
     Dates: start: 20030729, end: 20030729
  4. SEVOFLURANE [Concomitant]
     Indication: COLONOSCOPY
     Dates: start: 20030729, end: 20030729
  5. PLAVIX [Concomitant]
  6. FONZYLANE [Concomitant]
  7. MOPRAL [Concomitant]

REACTIONS (4)
  - ANOSMIA [None]
  - HYPOSMIA [None]
  - PAROSMIA [None]
  - RHINITIS [None]
